FAERS Safety Report 19930023 (Version 1)
Quarter: 2021Q4

REPORT INFORMATION
  Report Type: Spontaneous
  Country: RU (occurrence: RU)
  Receive Date: 20211007
  Receipt Date: 20211007
  Transmission Date: 20220303
  Serious: Yes (Other)
  Sender: FDA-Public Use
  Company Number: RU-BAXTER-2021BAX031468

PATIENT
  Age: 65 Year
  Sex: Female

DRUGS (4)
  1. DOXIL [Suspect]
     Active Substance: DOXORUBICIN HYDROCHLORIDE
     Indication: Uterine leiomyosarcoma
     Dosage: 25 MG/M2 INTRAVENOUSLY, ON DAYS 1 TO 3; CYCLICAL (150 MG/M2, 2 CYCLICAL)
     Route: 042
     Dates: start: 2019
  2. DOXIL [Suspect]
     Active Substance: DOXORUBICIN HYDROCHLORIDE
     Dosage: 18.7 MG/M2 INTRAVENOUSLY, ON DAYS 1 TO 3
     Route: 042
     Dates: start: 2019
  3. IFOSFAMIDE [Suspect]
     Active Substance: IFOSFAMIDE
     Indication: Uterine leiomyosarcoma
     Dosage: 2500 MG/M2/DAY ON DAYS 1 TO 4; CYCLICAL (20000 MG/M2,2 CYCLICAL)
     Route: 065
     Dates: start: 2019
  4. IFOSFAMIDE [Suspect]
     Active Substance: IFOSFAMIDE
     Dosage: 1875 MG/M2/DAY INTRAVENOUSLY, ON DAYS 1 TO 4
     Route: 042
     Dates: start: 2019

REACTIONS (2)
  - Febrile neutropenia [Unknown]
  - Thrombocytopenia [Unknown]

NARRATIVE: CASE EVENT DATE: 20190101
